FAERS Safety Report 8350391-4 (Version None)
Quarter: 2012Q2

REPORT INFORMATION
  Report Type: 
  Country: None (occurrence: None)
  Receive Date: 20120510
  Receipt Date: 20120504
  Transmission Date: 20120825
  Serious: Yes (Life-Threatening, Hospitalization)
  Sender: FDA-Public Use
  Company Number: US-BAYER-2012-020943

PATIENT
  Age: 24 Year
  Sex: Female

DRUGS (11)
  1. AZITHROMYCIN [Concomitant]
     Dosage: UNK
     Route: 048
     Dates: start: 20090203
  2. YAZ [Suspect]
     Dosage: UNK
     Dates: start: 20080614, end: 20090128
  3. BIRTH CONTROL PILLS [Concomitant]
  4. NAPROSYN [Concomitant]
     Dosage: UNK
     Route: 048
     Dates: start: 20090203
  5. COMPAZINE [Concomitant]
  6. ZITHROMAX [Concomitant]
  7. IMITREX [Concomitant]
     Indication: MIGRAINE
     Dosage: UNK UNK, PRN
     Route: 048
     Dates: start: 20080409
  8. VICODIN [Concomitant]
  9. IBUPROFEN (ADVIL) [Concomitant]
     Dosage: UNK UNK, PRN
     Route: 048
     Dates: start: 20080409
  10. YAZ [Suspect]
     Dosage: UNK
     Dates: start: 20080228, end: 20080415
  11. YASMIN [Suspect]

REACTIONS (9)
  - EMOTIONAL DISTRESS [None]
  - LOBAR PNEUMONIA [None]
  - GALLBLADDER DISORDER [None]
  - PULMONARY EMBOLISM [None]
  - ANXIETY [None]
  - FEAR [None]
  - CHOLECYSTITIS ACUTE [None]
  - PAIN [None]
  - ANHEDONIA [None]
